FAERS Safety Report 22140316 (Version 2)
Quarter: 2023Q1

REPORT INFORMATION
  Report Type: Report from Study
  Country: KR (occurrence: KR)
  Receive Date: 20230327
  Receipt Date: 20230330
  Transmission Date: 20230417
  Serious: Yes (Other)
  Sender: FDA-Public Use
  Company Number: KR-MYLANLABS-2023M1031726

PATIENT
  Age: 55 Year
  Sex: Female

DRUGS (10)
  1. TRASTUZUMAB [Suspect]
     Active Substance: TRASTUZUMAB
     Indication: Breast cancer
     Dosage: 8 MILLIGRAM, 3XW
     Route: 042
     Dates: start: 20200407, end: 20200407
  2. TRASTUZUMAB [Suspect]
     Active Substance: TRASTUZUMAB
     Dosage: 6 MILLIGRAM, 3XW (27-APR-2020)
     Route: 042
  3. ACETAMINOPHEN [Concomitant]
     Active Substance: ACETAMINOPHEN
     Indication: Prophylactic chemotherapy
     Dosage: 600 MILLIGRAM, 3XW
     Route: 048
     Dates: start: 20200407
  4. ACETAMINOPHEN\TRAMADOL HYDROCHLORIDE [Concomitant]
     Active Substance: ACETAMINOPHEN\TRAMADOL HYDROCHLORIDE
     Dosage: 1 DOSAGE FORM, BID
     Route: 048
     Dates: start: 20200407
  5. MAGNESIUM HYDROXIDE [Concomitant]
     Active Substance: MAGNESIUM HYDROXIDE
     Dosage: 500 MILLIGRAM, BID
     Route: 048
     Dates: start: 20200407
  6. FAMOTIDINE [Concomitant]
     Active Substance: FAMOTIDINE
     Dosage: 20 MILLIGRAM, 3XW
     Route: 042
     Dates: start: 20200407
  7. METOCLOPRAMIDE HYDROCHLORIDE [Concomitant]
     Active Substance: METOCLOPRAMIDE HYDROCHLORIDE
     Dosage: 10 MILLIGRAM, 3XW
     Route: 042
     Dates: start: 20200407
  8. DEXAMETHASONE [Concomitant]
     Active Substance: DEXAMETHASONE
     Dosage: 8 MILLIGRAM, 3XW
     Route: 042
     Dates: start: 20200407
  9. CHLORPHENIRAMINE MALEATE [Concomitant]
     Active Substance: CHLORPHENIRAMINE MALEATE
     Dosage: 4 MILLIGRAM, 3XW
     Route: 042
     Dates: start: 20200407
  10. CELEBREX [Concomitant]
     Active Substance: CELECOXIB
     Dosage: 200 MILLIGRAM, BID
     Route: 048
     Dates: start: 20200407

REACTIONS (2)
  - Neuropathy peripheral [Recovering/Resolving]
  - Dizziness [Recovered/Resolved]

NARRATIVE: CASE EVENT DATE: 20200831
